FAERS Safety Report 7552763-4 (Version None)
Quarter: 2011Q2

REPORT INFORMATION
  Report Type: 
  Country: None (occurrence: None)
  Receive Date: 20110616
  Receipt Date: 20110614
  Transmission Date: 20111010
  Serious: Yes (Other)
  Sender: FDA-Public Use
  Company Number: JP-PFIZER INC-2011048841

PATIENT
  Age: 60 Year
  Sex: Male
  Weight: 54 kg

DRUGS (4)
  1. VARENICLINE TARTRATE [Suspect]
     Dosage: 1 MG, 2X/DAY
     Route: 048
     Dates: start: 20110220, end: 20110220
  2. VARENICLINE TARTRATE [Suspect]
     Dosage: 0.5 MG, 2X/DAY
     Route: 048
     Dates: start: 20110216, end: 20110219
  3. VARENICLINE TARTRATE [Suspect]
     Indication: NICOTINE DEPENDENCE
     Dosage: 0.5 MG, 1X/DAY
     Route: 048
     Dates: start: 20110213, end: 20110215
  4. SPIRIVA [Concomitant]
     Indication: CHRONIC OBSTRUCTIVE PULMONARY DISEASE
     Dosage: 18 UG, 1X/DAY
     Dates: start: 20101027

REACTIONS (3)
  - TREMOR [None]
  - LOSS OF CONSCIOUSNESS [None]
  - SALIVARY HYPERSECRETION [None]
